FAERS Safety Report 9475636 (Version 2)
Quarter: 2013Q3

REPORT INFORMATION
  Report Type: Report from Study
  Country: BR (occurrence: BR)
  Receive Date: 20130826
  Receipt Date: 20130920
  Transmission Date: 20140515
  Serious: Yes (Hospitalization, Other)
  Sender: FDA-Public Use
  Company Number: PHHY2013BR091608

PATIENT
  Age: 75 Year
  Sex: Female
  Weight: 76 kg

DRUGS (8)
  1. ACLASTA [Suspect]
     Indication: OSTEOPOROSIS
     Dosage: 5 MG, UNK
     Route: 042
     Dates: start: 201307
  2. OMEPRAZOLE [Concomitant]
     Indication: GASTRIC DISORDER
     Dosage: 1 DF, DAILY
     Route: 048
     Dates: start: 2009
  3. CALCIUM [Concomitant]
     Dosage: UNK UKN, UNK
     Dates: start: 2013
  4. GABANEURIN [Concomitant]
     Indication: BONE DISORDER
     Dosage: 5 MG (1 TABLET), DAILY
     Dates: start: 201308
  5. SELOZOK [Concomitant]
     Indication: TACHYCARDIA
     Dosage: 50 MG (2 TABLETS), DAILY
     Route: 048
     Dates: start: 201307
  6. CILASTATIN [Concomitant]
     Dosage: 2 DF, DAILY
     Dates: start: 2010, end: 201308
  7. CALCIUM D                          /00944201/ [Concomitant]
     Indication: OSTEOPENIA
     Dosage: 1 DF, DAILY
     Route: 048
  8. CALCIUM D                          /00944201/ [Concomitant]
     Indication: OSTEOPOROSIS

REACTIONS (3)
  - Cerebrovascular accident [Recovered/Resolved]
  - Blood glucose abnormal [Unknown]
  - Insomnia [Not Recovered/Not Resolved]
